FAERS Safety Report 15249573 (Version 1)
Quarter: 2018Q3

REPORT INFORMATION
  Report Type: Spontaneous
  Country: US (occurrence: US)
  Receive Date: 20180716
  Receipt Date: 20180716
  Transmission Date: 20181010
  Serious: Yes (Life-Threatening, Hospitalization)
  Sender: FDA-Public Use
  Company Number: None

PATIENT
  Age: 82 Year
  Sex: Male
  Weight: 86 kg

DRUGS (7)
  1. KEYTRUDA [Suspect]
     Active Substance: PEMBROLIZUMAB
     Indication: NON-SMALL CELL LUNG CANCER
     Dosage: ?          OTHER FREQUENCY:EVERY 3 WEEKS;?
     Route: 042
     Dates: start: 20180511, end: 20180622
  2. HYDROCHLOROTHIAZIDE 25 MG [Concomitant]
     Active Substance: HYDROCHLOROTHIAZIDE
  3. AMLODIPINE [Concomitant]
     Active Substance: AMLODIPINE BESYLATE
  4. COMBIVENT RESPIMAT 20?100 MCG/INHALER [Concomitant]
  5. SIMVASTATIN 20 MG [Concomitant]
     Active Substance: SIMVASTATIN
  6. ADVAIR DISKUS 250?50 MCG/DOSE INHALER [Concomitant]
  7. TAMSULOSIN 0.4 MG [Concomitant]
     Active Substance: TAMSULOSIN

REACTIONS (4)
  - Dyspnoea [None]
  - Pneumonitis [None]
  - Dyspnoea exertional [None]
  - Hypoxia [None]

NARRATIVE: CASE EVENT DATE: 20180701
